FAERS Safety Report 7934826-4 (Version None)
Quarter: 2011Q4

REPORT INFORMATION
  Report Type: 
  Country: None (occurrence: None)
  Receive Date: 20111122
  Receipt Date: 20111117
  Transmission Date: 20120403
  Serious: Yes (Life-Threatening, Hospitalization)
  Sender: FDA-Public Use
  Company Number: CHPA2011US016331

PATIENT
  Sex: Male

DRUGS (4)
  1. EXCEDRIN (MIGRAINE) [Suspect]
     Indication: PAIN
     Dosage: UNK DF, UNK
     Route: 048
     Dates: start: 19650101
  2. EXCEDRIN (MIGRAINE) [Suspect]
     Dosage: UNK DF, CHEWED
     Route: 048
     Dates: start: 20010101
  3. EXCEDRIN (MIGRAINE) [Suspect]
     Dosage: 2 DF EVERY 4-6 HOURS
     Route: 048
  4. ALKA-SELTZER                            /USA/ [Concomitant]
     Dosage: UNK DF, UNK
     Route: 048

REACTIONS (7)
  - WRONG TECHNIQUE IN DRUG USAGE PROCESS [None]
  - GASTRIC HAEMORRHAGE [None]
  - INJURY [None]
  - HAEMORRHAGE [None]
  - SKIN HAEMORRHAGE [None]
  - HEAD BANGING [None]
  - OVERDOSE [None]
